FAERS Safety Report 8181638-5 (Version None)
Quarter: 2012Q1

REPORT INFORMATION
  Report Type: 
  Country: None (occurrence: None)
  Receive Date: 20120302
  Receipt Date: 20120228
  Transmission Date: 20120608
  Serious: Yes (Death, Hospitalization)
  Sender: FDA-Public Use
  Company Number: US-PFIZER INC-2011248005

PATIENT
  Sex: Female

DRUGS (2)
  1. XALKORI [Suspect]
     Indication: LUNG NEOPLASM MALIGNANT
     Dosage: 250 MG, 2X/DAY
     Dates: start: 20111013
  2. FENTANYL-100 [Interacting]
     Indication: PAIN

REACTIONS (9)
  - VISION BLURRED [None]
  - DEATH [None]
  - PHOTOPHOBIA [None]
  - FATIGUE [None]
  - CONSTIPATION [None]
  - NAUSEA [None]
  - DRUG INTERACTION [None]
  - PHOTOPSIA [None]
  - VOMITING [None]
